FAERS Safety Report 16134760 (Version 1)
Quarter: 2019Q1

REPORT INFORMATION
  Report Type: Spontaneous
  Country: GB (occurrence: GB)
  Receive Date: 20190329
  Receipt Date: 20190329
  Transmission Date: 20190418
  Serious: Yes (Other)
  Sender: FDA-Public Use
  Company Number: GB-JNJFOC-20190220656

PATIENT
  Age: 3 Decade
  Sex: Female

DRUGS (1)
  1. CILEST [Suspect]
     Active Substance: ETHINYL ESTRADIOL\NORGESTIMATE
     Indication: MENOPAUSAL SYMPTOMS
     Route: 065

REACTIONS (12)
  - Vaginal haemorrhage [Unknown]
  - Affective disorder [Unknown]
  - Blood oestrogen decreased [Unknown]
  - Mental disorder [Unknown]
  - Product use in unapproved indication [Unknown]
  - Arthralgia [Unknown]
  - Fatigue [Unknown]
  - Off label use [Unknown]
  - Weight increased [Unknown]
  - Wrong technique in product usage process [Unknown]
  - Suicidal ideation [Unknown]
  - Headache [Unknown]

NARRATIVE: CASE EVENT DATE: 2016
